FAERS Safety Report 6204410-1 (Version None)
Quarter: 2009Q2

REPORT INFORMATION
  Report Type: 
  Country: None (occurrence: None)
  Receive Date: 20090521
  Receipt Date: 20090511
  Transmission Date: 20091009
  Serious: No
  Sender: FDA-Public Use
  Company Number: 2009-195347-NL

PATIENT
  Age: 31 Year
  Sex: Male

DRUGS (9)
  1. DEXAMETHASONE 4MG TAB [Suspect]
     Indication: ANTIEMETIC SUPPORTIVE CARE
     Dosage: 80 MG/DF
  2. DEXAMETHASONE 4MG TAB [Suspect]
     Indication: METASTASES TO LUNG
     Dosage: 80 MG/DF
  3. DEXAMETHASONE 4MG TAB [Suspect]
     Indication: TESTIS CANCER
     Dosage: 80 MG/DF
  4. BLEOMYCIN SULFATE [Suspect]
     Indication: METASTASES TO LUNG
     Dosage: DF
  5. BLEOMYCIN SULFATE [Suspect]
     Indication: TESTIS CANCER
     Dosage: DF
  6. ETOPOSIDE [Suspect]
     Indication: METASTASES TO LUNG
     Dosage: DF
  7. ETOPOSIDE [Suspect]
     Indication: TESTIS CANCER
     Dosage: DF
  8. CISPLATIN [Suspect]
     Indication: METASTASES TO LUNG
     Dosage: DF
  9. CISPLATIN [Suspect]
     Indication: TESTIS CANCER
     Dosage: DF

REACTIONS (5)
  - BLOOD PRESSURE DECREASED [None]
  - CONVULSION [None]
  - DIARRHOEA [None]
  - ISCHAEMIC CEREBRAL INFARCTION [None]
  - LOSS OF CONSCIOUSNESS [None]
